FAERS Safety Report 21487769 (Version 1)
Quarter: 2022Q4

REPORT INFORMATION
  Report Type: Spontaneous
  Country: US (occurrence: US)
  Receive Date: 20221020
  Receipt Date: 20221020
  Transmission Date: 20230113
  Serious: No
  Sender: FDA-Public Use
  Company Number: US-NOVOPROD-877365

PATIENT
  Age: 69 Year
  Sex: Female

DRUGS (2)
  1. ESTRADIOL [Suspect]
     Active Substance: ESTRADIOL
     Indication: Hormone replacement therapy
     Dosage: 10MCG, 2 TIMES A WEEK
     Route: 067
     Dates: start: 20211003
  2. ESTRADIOL [Suspect]
     Active Substance: ESTRADIOL
     Dosage: 10MCG, 2 TIMES A WEEK
     Route: 067
     Dates: end: 20211211

REACTIONS (2)
  - Vaginal discharge [Not Recovered/Not Resolved]
  - Vulvovaginal pruritus [Not Recovered/Not Resolved]

NARRATIVE: CASE EVENT DATE: 20211003
